FAERS Safety Report 7771160-X (Version None)
Quarter: 2011Q3

REPORT INFORMATION
  Report Type: 
  Country: None (occurrence: None)
  Receive Date: 20110922
  Receipt Date: 20110209
  Transmission Date: 20111222
  Serious: Yes (Other)
  Sender: FDA-Public Use
  Company Number: US-ASTRAZENECA-2009SE09751

PATIENT
  Age: 22362 Day
  Sex: Male
  Weight: 102.1 kg

DRUGS (3)
  1. RISPERDAL [Concomitant]
  2. SEROQUEL [Suspect]
     Indication: DEPRESSION
     Route: 048
     Dates: start: 20050630, end: 20080828
  3. LEPTOPRIL [Concomitant]
     Indication: WEIGHT CONTROL

REACTIONS (2)
  - TYPE 2 DIABETES MELLITUS [None]
  - PANCREATITIS [None]
